FAERS Safety Report 18321749 (Version 2)
Quarter: 2020Q4

REPORT INFORMATION
  Report Type: Spontaneous
  Country: US (occurrence: US)
  Receive Date: 20200929
  Receipt Date: 20201026
  Transmission Date: 20210113
  Serious: No
  Sender: FDA-Public Use
  Company Number: US-BEH-2020122672

PATIENT
  Age: 56 Year
  Sex: Female
  Weight: 95.24 kg

DRUGS (3)
  1. HIZENTRA [Suspect]
     Active Substance: HUMAN IMMUNOGLOBULIN G
     Indication: IMMUNODEFICIENCY
     Dosage: 10 GRAM, QW
     Route: 058
     Dates: start: 20200903
  2. TYLENOL [Concomitant]
     Active Substance: ACETAMINOPHEN
  3. ALEVE [Concomitant]
     Active Substance: NAPROXEN SODIUM

REACTIONS (2)
  - Infusion site extravasation [Recovered/Resolved]
  - Wrong technique in product usage process [Recovered/Resolved]

NARRATIVE: CASE EVENT DATE: 20200904
